FAERS Safety Report 23829504 (Version 1)
Quarter: 2024Q2

REPORT INFORMATION
  Report Type: Spontaneous
  Country: PL (occurrence: PL)
  Receive Date: 20240508
  Receipt Date: 20240508
  Transmission Date: 20240716
  Serious: Yes (Hospitalization)
  Sender: FDA-Public Use
  Company Number: None

PATIENT
  Age: 54 Year
  Sex: Female
  Weight: 68 kg

DRUGS (8)
  1. CARBOPLATIN [Suspect]
     Active Substance: CARBOPLATIN
     Indication: Ovarian cancer
     Dosage: 530 MG EVERY 3 WEEKS, MOST RECENT DOSE 11JAN2018
     Dates: start: 20170911, end: 20180111
  2. PACLITAXEL [Suspect]
     Active Substance: PACLITAXEL
     Indication: Ovarian cancer
     Dosage: 106 MG, WEEKLY, MOST RECENT DOSE 11JAN2018
     Dates: start: 20170911, end: 20180111
  3. AVELUMAB [Suspect]
     Active Substance: AVELUMAB
     Indication: Ovarian cancer
     Dosage: 730 MG EVERY 3 WEEKS, MOST RECENT DOSE 11JAN2018
     Dates: start: 20170911, end: 20180111
  4. PERINDOPRIL [Concomitant]
     Active Substance: PERINDOPRIL
     Indication: Hypertension
     Dosage: 5 MG, 1 /DAY, MOST RECENT DOSE 12JAN2018
     Dates: start: 2010
  5. METOPROLOL TARTRATE [Concomitant]
     Active Substance: METOPROLOL TARTRATE
     Indication: Hyperthyroidism
     Dosage: 25 MG, 3/DAY, MOST RECENT DOSE 12JAN2018
     Dates: start: 20171108
  6. OMEPRAZOLE [Concomitant]
     Active Substance: DONEPEZIL HYDROCHLORIDE\OMEPRAZOLE\OMEPRAZOLE MAGNESIUM
     Indication: Prophylaxis
     Dosage: 40 MG, 1 /DAY, MOST RECENT DOSE 12JAN2018
     Dates: start: 20170909
  7. CARVEDILOL [Concomitant]
     Active Substance: CARVEDILOL
     Indication: Hypertension
     Dosage: 6.25 MG, 2 /DAY, MOST RECENT DOSE 12JAN2018
     Dates: start: 2010
  8. PREDNISONE [Concomitant]
     Active Substance: PREDNISONE
     Indication: Hyperthyroidism
     Dosage: 10 MG, 1 /DAY, MOST RECENT DOSE 12JAN2018
     Dates: start: 20171116

REACTIONS (1)
  - Lymphopenia [Recovered/Resolved]

NARRATIVE: CASE EVENT DATE: 20180112
